FAERS Safety Report 9170204 (Version 3)
Quarter: 2013Q1

REPORT INFORMATION
  Report Type: Spontaneous
  Country: JP (occurrence: None)
  Receive Date: 20130312
  Receipt Date: 20130325
  Transmission Date: 20140127
  Serious: Yes (Hospitalization, Other)
  Sender: FDA-Public Use
  Company Number: 2013-025784

PATIENT
  Age: 55 Year
  Sex: Male
  Weight: 73 kg

DRUGS (8)
  1. BAY86-5321 [Suspect]
     Indication: DIABETIC RETINAL OEDEMA
     Route: 031
     Dates: start: 20110830
  2. AMARYL (GLIMEPIRIDE) [Concomitant]
  3. METHYCOBAL [Concomitant]
  4. ZYLORIC [Concomitant]
  5. LIVALO [Concomitant]
  6. AMLODIN [Concomitant]
  7. BLOPRESS [Concomitant]
  8. BROMFENAC SODIUM [Concomitant]

REACTIONS (2)
  - Subdural haematoma [None]
  - Loss of consciousness [None]
